FAERS Safety Report 9849445 (Version 1)
Quarter: 2014Q1

REPORT INFORMATION
  Report Type: Spontaneous
  Country: US (occurrence: US)
  Receive Date: 20140128
  Receipt Date: 20140128
  Transmission Date: 20141002
  Serious: No
  Sender: FDA-Public Use
  Company Number: US-TEVA-459177USA

PATIENT
  Age: 23 Year
  Sex: Female
  Weight: 50.39 kg

DRUGS (3)
  1. PLAN B ONE-STEP [Suspect]
     Indication: POST COITAL CONTRACEPTION
     Dosage: 1.5 MILLIGRAM DAILY;
     Route: 048
     Dates: start: 20140117, end: 20140117
  2. ZITHROMAX [Concomitant]
     Indication: UPPER RESPIRATORY TRACT INFECTION
     Route: 048
  3. MICROGESTIN [Concomitant]
     Indication: CONTRACEPTION
     Route: 048

REACTIONS (1)
  - Nausea [Not Recovered/Not Resolved]
